FAERS Safety Report 9315177 (Version 4)
Quarter: 2013Q3

REPORT INFORMATION
  Report Type: Report from Study
  Country: DE (occurrence: DE)
  Receive Date: 20130529
  Receipt Date: 20130702
  Transmission Date: 20140515
  Serious: Yes (Hospitalization)
  Sender: FDA-Public Use
  Company Number: DE-ROCHE-1228750

PATIENT
  Age: 68 Year
  Sex: Male
  Weight: 100.4 kg

DRUGS (8)
  1. RITUXIMAB [Suspect]
     Indication: B-CELL LYMPHOMA
     Dosage: LAST DOSE PRIOR TO EVENT 19/JAN/2012
     Route: 042
     Dates: start: 20110706, end: 20130604
  2. RITUXIMAB [Suspect]
     Route: 042
     Dates: start: 20130604, end: 20130604
  3. BENDAMUSTINE [Suspect]
     Indication: B-CELL LYMPHOMA
     Dosage: DATE OF LAST DOSE PRIOR TO SAE: 24/NOV/2011
     Route: 042
     Dates: start: 20110707
  4. BENDAMUSTINE [Suspect]
     Route: 042
     Dates: start: 20130605, end: 20130605
  5. MARCUMAR [Concomitant]
  6. SIMVASTATIN [Concomitant]
     Route: 065
     Dates: end: 20130515
  7. BELOC-ZOK MITE [Concomitant]
     Route: 065
     Dates: end: 20130515
  8. FLECAINIDE [Concomitant]

REACTIONS (5)
  - Disease progression [Not Recovered/Not Resolved]
  - Pancytopenia [Not Recovered/Not Resolved]
  - General physical health deterioration [Not Recovered/Not Resolved]
  - Pain [Not Recovered/Not Resolved]
  - Richter^s syndrome [Not Recovered/Not Resolved]
